FAERS Safety Report 10523227 (Version 8)
Quarter: 2015Q1

REPORT INFORMATION
  Report Type: Report from Study
  Country: GB (occurrence: GB)
  Receive Date: 20141016
  Receipt Date: 20150206
  Transmission Date: 20150720
  Serious: Yes (Death, Life-Threatening, Other)
  Sender: FDA-Public Use
  Company Number: GB-GLAXOSMITHKLINE-B1008552A

PATIENT

DRUGS (14)
  1. SERETIDE [Concomitant]
     Active Substance: FLUTICASONE FUROATE\SALMETEROL XINAFOATE
     Indication: CHRONIC OBSTRUCTIVE PULMONARY DISEASE
     Dosage: 500/50 004 BID
     Route: 055
     Dates: start: 20111101, end: 20131001
  2. FLUTICASONE FUROATE + VILANTEROL TRIFENATATE [Suspect]
     Active Substance: FLUTICASONE FUROATE\VILANTEROL TRIFENATATE
     Indication: CHRONIC OBSTRUCTIVE PULMONARY DISEASE
     Dosage: 100/25 004 OD
     Dates: start: 20131002, end: 20140720
  3. ZOPICLONE [Concomitant]
     Active Substance: ZOPICLONE
     Indication: INSOMNIA
     Dosage: 7.5 003 UNK
     Route: 048
     Dates: start: 20140811
  4. OROMORPH [Concomitant]
     Indication: PAIN
     Dosage: 10 003 PRN
     Route: 048
     Dates: start: 20141106
  5. MORPHGESIC [Concomitant]
     Dosage: 10 003 BID
     Route: 048
     Dates: start: 2014, end: 20141118
  6. AMOXICILLIN. [Concomitant]
     Active Substance: AMOXICILLIN
     Indication: UPPER RESPIRATORY TRACT INFECTION
     Dosage: 500 003 UNK
     Route: 048
     Dates: start: 20140811
  7. MIDAZOLAM [Concomitant]
     Active Substance: MIDAZOLAM\MIDAZOLAM HYDROCHLORIDE
     Dosage: 10 004 UNK
     Dates: start: 20141211, end: 201412
  8. DEXAMETHASONE. [Concomitant]
     Active Substance: DEXAMETHASONE
     Indication: PAIN
     Dosage: 2 003 BID
     Route: 048
     Dates: start: 20141020
  9. AMOXICILLIN. [Concomitant]
     Active Substance: AMOXICILLIN
     Indication: URINARY TRACT INFECTION
     Dosage: 500 003 TID
     Route: 048
     Dates: start: 20141121, end: 201411
  10. GLYCOPYRRONIUM BROMIDE [Concomitant]
     Active Substance: GLYCOPYRRONIUM
     Dosage: 200 004 UNK
     Dates: start: 20141211, end: 201412
  11. FLUTICASONE PROPIONATE+SALMETEROL XINAFOATE [Suspect]
     Active Substance: FLUTICASONE PROPIONATE\SALMETEROL XINAFOATE
     Indication: CHRONIC OBSTRUCTIVE PULMONARY DISEASE
     Dosage: 500/50 UG BID
     Route: 055
     Dates: start: 20140721
  12. TIOTROPIUM [Suspect]
     Active Substance: TIOTROPIUM
     Indication: CHRONIC OBSTRUCTIVE PULMONARY DISEASE
     Dosage: 18 004 OD
     Dates: start: 20140619
  13. MORPHGESIC [Concomitant]
     Indication: PAIN
     Dosage: 20 003 BID
     Route: 048
     Dates: start: 20141119
  14. MORPHGESIC [Concomitant]
     Dosage: 20 003 BID
     Route: 048
     Dates: start: 20141119

REACTIONS (1)
  - Lung squamous cell carcinoma stage IV [Fatal]

NARRATIVE: CASE EVENT DATE: 20140531
